FAERS Safety Report 9782957 (Version 2)
Quarter: 2013Q4

REPORT INFORMATION
  Report Type: Spontaneous
  Country: JP (occurrence: JP)
  Receive Date: 20131226
  Receipt Date: 20131230
  Transmission Date: 20140711
  Serious: Yes (Hospitalization)
  Sender: FDA-Public Use
  Company Number: JP-B.I. PHARMACEUTICALS,INC./RIDGEFIELD-2013-BI-43612NB

PATIENT
  Age: 83 Year
  Sex: Female

DRUGS (9)
  1. PRAZAXA [Suspect]
     Dosage: 220 MG
     Route: 048
  2. PRAZAXA [Suspect]
     Dosage: 150 MG
     Route: 048
  3. SYMBICORT / BUDESONIDE_FORMOTEROL FUMARATE HYDRATE [Concomitant]
     Route: 055
  4. ARTIST / CARVEDILOL [Concomitant]
     Dosage: 2.5 MG
     Route: 048
  5. OLMETEC / OLMESARTAN MEDOXOMIL [Concomitant]
     Dosage: 20 MG
     Route: 048
  6. UNKNOWN DRUG [Concomitant]
     Dosage: 10 MG
     Route: 048
  7. LASIX / FUROSEMIDE [Concomitant]
     Route: 065
  8. BESASTAR SR / BEZAFIBRATE [Concomitant]
     Route: 065
  9. DEPAS / ETIZOLAM [Concomitant]
     Route: 065

REACTIONS (2)
  - Ocular hyperaemia [Not Recovered/Not Resolved]
  - Oedema [Not Recovered/Not Resolved]
